FAERS Safety Report 18478722 (Version 2)
Quarter: 2020Q4

REPORT INFORMATION
  Report Type: Spontaneous
  Country: FR (occurrence: FR)
  Receive Date: 20201109
  Receipt Date: 20201113
  Transmission Date: 20210114
  Serious: Yes (Death, Hospitalization)
  Sender: FDA-Public Use
  Company Number: FR-SA-2020SA313095

PATIENT

DRUGS (9)
  1. ETOPOSIDE. [Suspect]
     Active Substance: ETOPOSIDE
     Indication: TESTIS CANCER
     Dosage: 950 MG, QCY
     Route: 042
     Dates: start: 20200901, end: 20200901
  2. PACLITAXEL. [Suspect]
     Active Substance: PACLITAXEL
     Indication: TESTIS CANCER
     Dosage: 330 MG, QCY
     Route: 042
     Dates: start: 20200901, end: 20200901
  3. ETOPOSIDE. [Suspect]
     Active Substance: ETOPOSIDE
     Dosage: 950 MG, QCY
     Route: 042
     Dates: start: 20200905, end: 20200905
  4. CISPLATIN. [Suspect]
     Active Substance: CISPLATIN
     Dosage: 190 MG, QCY
     Route: 042
     Dates: start: 20200901, end: 20200901
  5. BLEOMYCIN [Suspect]
     Active Substance: BLEOMYCIN SULFATE
     Indication: TESTIS CANCER
     Dosage: 90 MG, QCY
     Route: 042
     Dates: start: 20200901, end: 20200901
  6. BLEOMYCIN [Suspect]
     Active Substance: BLEOMYCIN SULFATE
     Dosage: 90 MG, QCY
     Route: 042
     Dates: start: 20200915, end: 20200915
  7. CISPLATIN. [Suspect]
     Active Substance: CISPLATIN
     Indication: TESTIS CANCER
     Dosage: 198 MG, QD
     Route: 042
     Dates: start: 20200923, end: 20200923
  8. OXALIPLATIN. [Suspect]
     Active Substance: OXALIPLATIN
     Indication: TESTIS CANCER
     Dosage: 247 MG, QCY
     Route: 042
     Dates: start: 20200910, end: 20200910
  9. CISPLATIN. [Suspect]
     Active Substance: CISPLATIN
     Dosage: 190 MG, QCY
     Route: 042
     Dates: start: 20200905, end: 20200905

REACTIONS (3)
  - Respiratory failure [Fatal]
  - Lung disorder [Fatal]
  - Acute respiratory distress syndrome [Fatal]

NARRATIVE: CASE EVENT DATE: 20201005
